FAERS Safety Report 16491317 (Version 1)
Quarter: 2019Q2

REPORT INFORMATION
  Report Type: Spontaneous
  Country: GB (occurrence: GB)
  Receive Date: 20190628
  Receipt Date: 20190628
  Transmission Date: 20190711
  Serious: Yes (Life-Threatening)
  Sender: FDA-Public Use
  Company Number: GB-TEVA-2019-GB-1070192

PATIENT
  Age: 57 Year
  Sex: Male
  Weight: 128 kg

DRUGS (6)
  1. CEFALEXIN [Suspect]
     Active Substance: CEPHALEXIN
     Dates: start: 20190521
  2. TADALAFIL. [Concomitant]
     Active Substance: TADALAFIL
     Dates: start: 20181011
  3. TAMSULOSIN HYDROCHLORIDE. [Concomitant]
     Active Substance: TAMSULOSIN HYDROCHLORIDE
     Dates: start: 20181011
  4. ATORVASTATIN [Concomitant]
     Active Substance: ATORVASTATIN
     Dates: start: 20181011
  5. LOSARTAN. [Concomitant]
     Active Substance: LOSARTAN
     Dates: start: 20181011
  6. DILTIAZEM HYDROCHLORIDE. [Concomitant]
     Active Substance: DILTIAZEM HYDROCHLORIDE
     Dates: start: 20181011

REACTIONS (1)
  - Anaphylactic reaction [Recovered/Resolved]

NARRATIVE: CASE EVENT DATE: 20190521
